FAERS Safety Report 8462543-3 (Version None)
Quarter: 2012Q2

REPORT INFORMATION
  Report Type: 
  Country: None (occurrence: None)
  Receive Date: 20120619
  Receipt Date: 20120619
  Transmission Date: 20120825
  Serious: Yes (Other)
  Sender: FDA-Public Use
  Company Number: None

PATIENT

DRUGS (1)
  1. BANANA BOAT NATURAL REFLECT SUNCREEN LOTION SPF 50 [Suspect]
     Dates: start: 20120601, end: 20120601

REACTIONS (3)
  - EYE DISORDER [None]
  - URTICARIA [None]
  - PRODUCT LABEL ISSUE [None]
